FAERS Safety Report 9125802 (Version 3)
Quarter: 2013Q1

REPORT INFORMATION
  Report Type: Spontaneous
  Country: CA (occurrence: CA)
  Receive Date: 20130228
  Receipt Date: 20130328
  Transmission Date: 20140127
  Serious: Yes (Hospitalization, Other)
  Sender: FDA-Public Use
  Company Number: CA-AMGEN-CANSP2013012388

PATIENT
  Age: 72 Year
  Sex: Female

DRUGS (3)
  1. ENBREL [Suspect]
     Indication: RHEUMATOID ARTHRITIS
     Dosage: UNK
     Dates: start: 20080219, end: 20130127
  2. ATENOLOL [Concomitant]
     Dosage: UNK
  3. TYLENOL ARTHRITIS [Concomitant]
     Indication: ARTHRITIS
     Dosage: 6 TABS PER DAY

REACTIONS (1)
  - Lymphoma [Not Recovered/Not Resolved]
